FAERS Safety Report 9337856 (Version 1)
Quarter: 2013Q2

REPORT INFORMATION
  Report Type: Spontaneous
  Country: US (occurrence: US)
  Receive Date: 20130607
  Receipt Date: 20130607
  Transmission Date: 20140414
  Serious: Yes (Other)
  Sender: FDA-Public Use
  Company Number: US-TEVA-409988USA

PATIENT
  Age: 28 Year
  Sex: Female
  Weight: 122.13 kg

DRUGS (1)
  1. PARAGARD 380A [Suspect]
     Indication: CONTRACEPTION
     Route: 015
     Dates: start: 2005, end: 20130501

REACTIONS (5)
  - Cervical dysplasia [Not Recovered/Not Resolved]
  - Device expulsion [Recovered/Resolved]
  - Abdominal pain [Unknown]
  - Vaginal odour [Unknown]
  - Vaginal infection [Recovered/Resolved]
